FAERS Safety Report 5391550-2 (Version None)
Quarter: 2007Q3

REPORT INFORMATION
  Report Type: 
  Country: None (occurrence: None)
  Receive Date: 20070717
  Receipt Date: 20070709
  Transmission Date: 20080115
  Serious: Yes (Hospitalization, Disabling, Other)
  Sender: FDA-Public Use
  Company Number: LTI2007A00114

PATIENT
  Age: 78 Year
  Sex: Male

DRUGS (4)
  1. ACTOS [Suspect]
     Indication: TYPE 2 DIABETES MELLITUS
     Dosage: 15 MG (15 MG, 1 IN 1 D) ORAL
     Route: 048
     Dates: start: 20060201, end: 20061201
  2. AMARYL [Concomitant]
  3. NICARDIPINE HYDROCHLORIDE [Concomitant]
  4. CORENITEC (HYDROCHLOROTHIAZIDE, ENALAPRIL MALEATE) [Concomitant]

REACTIONS (13)
  - AORTIC STENOSIS [None]
  - ARTERIOSCLEROSIS CORONARY ARTERY [None]
  - BRONCHOPNEUMONIA [None]
  - CARDIAC FAILURE [None]
  - CARDIOMYOPATHY [None]
  - CLAVICLE FRACTURE [None]
  - DYSPNOEA EXERTIONAL [None]
  - FALL [None]
  - HYPERTHYROIDISM [None]
  - MULTIPLE FRACTURES [None]
  - OEDEMA PERIPHERAL [None]
  - ORTHOPNOEA [None]
  - RIB FRACTURE [None]
